FAERS Safety Report 17356466 (Version 1)
Quarter: 2020Q1

REPORT INFORMATION
  Report Type: Report from Study
  Country: IT (occurrence: IT)
  Receive Date: 20200131
  Receipt Date: 20200131
  Transmission Date: 20200409
  Serious: Yes (Hospitalization)
  Sender: FDA-Public Use
  Company Number: IT-MYLANLABS-2020M1010924

PATIENT
  Age: 79 Year
  Sex: Male

DRUGS (1)
  1. RYTMOBETA 80 MG COMPRESSE [Suspect]
     Active Substance: SOTALOL HYDROCHLORIDE
     Indication: ATRIAL FIBRILLATION
     Dosage: 80 MILLIGRAM, QD
     Route: 048
     Dates: start: 20190401, end: 20191009

REACTIONS (3)
  - Motor dysfunction [Recovering/Resolving]
  - Monoparesis [Recovering/Resolving]
  - Ischaemia [Recovering/Resolving]

NARRATIVE: CASE EVENT DATE: 20191009
